FAERS Safety Report 19350387 (Version 1)
Quarter: 2021Q2

REPORT INFORMATION
  Report Type: Spontaneous
  Country: DE (occurrence: DE)
  Receive Date: 20210531
  Receipt Date: 20210531
  Transmission Date: 20210717
  Serious: Yes (Death, Life-Threatening, Hospitalization, Other)
  Sender: FDA-Public Use
  Company Number: DE-AUROBINDO-AUR-APL-2021-021048

PATIENT
  Age: 79 Year
  Sex: Female
  Weight: 72 kg

DRUGS (43)
  1. VALSARTAN MYLAN [Suspect]
     Active Substance: VALSARTAN
     Dosage: 160 MILLIGRAM, BID
     Route: 065
  2. ASPIRIN. [Concomitant]
     Active Substance: ASPIRIN
     Indication: TRANSIENT ISCHAEMIC ATTACK
     Dosage: UNK
     Route: 065
  3. BISOPROLOL [Concomitant]
     Active Substance: BISOPROLOL
     Dosage: 1/2?0?0 (AT HOSPITAL DISCHARGE)
     Route: 065
     Dates: start: 20181206
  4. BISOPROLOL DURA PLUS [Concomitant]
     Indication: PRODUCT USED FOR UNKNOWN INDICATION
     Dosage: UNK
     Route: 065
  5. CORTISONE [Concomitant]
     Active Substance: CORTISONE
     Dosage: UNK
     Route: 065
  6. DIGIMERCK [Concomitant]
     Active Substance: DIGITOXIN
     Indication: PRODUCT USED FOR UNKNOWN INDICATION
     Dosage: MINOR 0.07
     Route: 065
     Dates: start: 20190117
  7. MACROGOL [Concomitant]
     Active Substance: POLYETHYLENE GLYCOLS
     Indication: PRODUCT USED FOR UNKNOWN INDICATION
     Dosage: UNK
     Route: 065
     Dates: start: 20190214
  8. VALSARTAN. [Concomitant]
     Active Substance: VALSARTAN
     Dosage: 1?0?1 (AT HOSPITAL DISCHARGE)
     Dates: start: 20181206
  9. VALSARTAN. [Suspect]
     Active Substance: VALSARTAN
     Dosage: 320 MILLIGRAM, ONCE A DAY
     Route: 065
  10. VALSARTAN. [Suspect]
     Active Substance: VALSARTAN
     Dosage: UNK
     Route: 065
  11. ELIQUIS [Concomitant]
     Active Substance: APIXABAN
     Indication: PRODUCT USED FOR UNKNOWN INDICATION
     Dosage: UNK
     Route: 065
     Dates: start: 20181220
  12. HALOPERIDOL. [Concomitant]
     Active Substance: HALOPERIDOL
     Indication: PRODUCT USED FOR UNKNOWN INDICATION
     Dosage: UNK
     Route: 065
     Dates: start: 20190214
  13. L?THYROXIN [Concomitant]
     Active Substance: LEVOTHYROXINE SODIUM
     Indication: PRODUCT USED FOR UNKNOWN INDICATION
     Dosage: UNK UNK, QD 1?0?0 (AT HOSPITAL DISCHARGE)
     Route: 065
     Dates: start: 20181206
  14. VALSARTAN. [Suspect]
     Active Substance: VALSARTAN
     Dosage: UNK (160 IN MORNING AND 80 MG IN EVENING)
     Route: 065
  15. VALSARTAN. [Suspect]
     Active Substance: VALSARTAN
     Dosage: UNK
     Route: 065
     Dates: start: 20180313
  16. VALSARTAN. [Suspect]
     Active Substance: VALSARTAN
     Dosage: 320 OR 160 MG BID
     Route: 065
  17. VALSARTAN. [Suspect]
     Active Substance: VALSARTAN
     Dosage: UNK
     Route: 065
     Dates: start: 20180702
  18. VALSARTAN MYLAN [Suspect]
     Active Substance: VALSARTAN
     Dosage: 320 MILLIGRAM, ONCE A DAY
     Route: 065
  19. AMLODIPIN [Concomitant]
     Active Substance: AMLODIPINE BESYLATE
     Indication: PRODUCT USED FOR UNKNOWN INDICATION
     Dosage: UNK, BID 1?0?1 (AT HOSPITAL DISCHARGE)
     Route: 065
     Dates: start: 20180505
  20. CORTISONE [Concomitant]
     Active Substance: CORTISONE
     Indication: ERYTHEMA
     Dosage: UNK
  21. VALSARTAN. [Suspect]
     Active Substance: VALSARTAN
     Indication: HYPERTENSION
     Dosage: UNK (NOVARTIS AG)
     Route: 065
  22. HYDROMORPHONE [Concomitant]
     Active Substance: HYDROMORPHONE
     Indication: PRODUCT USED FOR UNKNOWN INDICATION
     Dosage: UNK
     Route: 065
     Dates: start: 20190214
  23. L?THYROXIN [Concomitant]
     Active Substance: LEVOTHYROXINE SODIUM
     Dosage: UNK UNK, QD 1?0?0 (AT HOSPITAL DISCHARGE)
     Route: 065
     Dates: start: 20180505
  24. NEURAX [Concomitant]
     Indication: PRODUCT USED FOR UNKNOWN INDICATION
     Dosage: UNK
     Route: 065
     Dates: start: 20190214
  25. TAVOR EXPIDET [Concomitant]
     Active Substance: LORAZEPAM
     Indication: PRODUCT USED FOR UNKNOWN INDICATION
     Dosage: UNK
     Route: 065
     Dates: start: 20190218
  26. VALSARTAN. [Suspect]
     Active Substance: VALSARTAN
     Dosage: 160 MILLIGRAM, ONCE A DAY
     Route: 065
  27. CLEXANE [Concomitant]
     Active Substance: ENOXAPARIN SODIUM
     Indication: PRODUCT USED FOR UNKNOWN INDICATION
     Dosage: UNK
     Route: 065
  28. VALSARTAN. [Suspect]
     Active Substance: VALSARTAN
     Dosage: UNK
     Route: 065
     Dates: start: 20181126
  29. VALSARTAN MYLAN [Suspect]
     Active Substance: VALSARTAN
     Indication: HYPERTENSION
     Dosage: 320 MILLIGRAM, ONCE A DAY
     Route: 065
  30. ACTRAPID [Concomitant]
     Active Substance: INSULIN HUMAN
     Indication: PRODUCT USED FOR UNKNOWN INDICATION
     Dosage: ACCORDING TO SCHEME (AT HOSPITAL DISCHARGE)
     Route: 065
     Dates: start: 20181206
  31. AMLODIPIN [Concomitant]
     Active Substance: AMLODIPINE BESYLATE
     Dosage: 1?0?1 (AT HOSPITAL DISCHARGE)
     Route: 065
     Dates: start: 20181206
  32. VALSARTAN. [Suspect]
     Active Substance: VALSARTAN
     Dosage: UNK
     Route: 065
  33. VALSARTAN MYLAN [Suspect]
     Active Substance: VALSARTAN
     Dosage: 320 MILLIGRAM, ONCE A DAY
     Route: 065
  34. VALSARTAN MYLAN [Suspect]
     Active Substance: VALSARTAN
     Dosage: 2 X 80 MG.
     Route: 065
  35. DEXAMETHASONE. [Concomitant]
     Active Substance: DEXAMETHASONE
     Indication: PRODUCT USED FOR UNKNOWN INDICATION
     Dosage: UNK, TID 1?1?1 (AT HOSPITAL DISCHARGE)
     Route: 065
     Dates: start: 20181206
  36. PANTOPRAZOL AL [Concomitant]
     Active Substance: PANTOPRAZOLE SODIUM
     Indication: PRODUCT USED FOR UNKNOWN INDICATION
     Dosage: UNK
     Route: 065
  37. VALSARTAN. [Concomitant]
     Active Substance: VALSARTAN
     Indication: PRODUCT USED FOR UNKNOWN INDICATION
     Dosage: UNK, BID 1?0?1 (AT HOSPITAL DISCHARGE)
     Route: 065
     Dates: start: 20180505
  38. VALSARTAN. [Suspect]
     Active Substance: VALSARTAN
     Dosage: UNK
     Route: 065
  39. ACTRAPHANE [Concomitant]
     Active Substance: INSULIN HUMAN
     Indication: PRODUCT USED FOR UNKNOWN INDICATION
     Dosage: 30 INNOLET FER 5 X3 ML
     Route: 065
     Dates: start: 20190104
  40. BISOPROLOL [Concomitant]
     Active Substance: BISOPROLOL
     Indication: PRODUCT USED FOR UNKNOWN INDICATION
     Dosage: 1/2?0?0 AT HOSPITAL DISCHARGE (10/25)
     Route: 065
     Dates: start: 20180505
  41. HCT [Concomitant]
     Active Substance: HYDROCHLOROTHIAZIDE
     Indication: PRODUCT USED FOR UNKNOWN INDICATION
     Dosage: 1/2?0?0 (AT HOSPITAL DISCHARGE)
     Route: 065
     Dates: start: 20181206
  42. PANTOZOL [Concomitant]
     Active Substance: PANTOPRAZOLE SODIUM
     Indication: PRODUCT USED FOR UNKNOWN INDICATION
     Dosage: UNK UNK, QD 1?0?0 (AT HOSPITAL DISCHARGE)
     Route: 065
     Dates: start: 20181206
  43. VALSARTAN. [Suspect]
     Active Substance: VALSARTAN
     Dosage: 320 OR 160 MG BID
     Route: 065

REACTIONS (44)
  - Hypertension [Unknown]
  - Meniscal degeneration [Unknown]
  - Aortic dilatation [Unknown]
  - Renal cell carcinoma [Fatal]
  - General physical health deterioration [Unknown]
  - Personality change [Unknown]
  - Basal cell carcinoma [Unknown]
  - Urinary retention [Unknown]
  - Tinnitus [Unknown]
  - Left ventricular hypertrophy [Unknown]
  - Pruritus [Unknown]
  - Hypothyroidism [Unknown]
  - Metastases to central nervous system [Unknown]
  - Erysipelas [Unknown]
  - Hypotension [Unknown]
  - Inflammatory marker increased [Unknown]
  - Visual impairment [Unknown]
  - Bladder disorder [Unknown]
  - Vomiting [Unknown]
  - Metastases to lung [Unknown]
  - Anaemia [Unknown]
  - Large intestine infection [Unknown]
  - Melanocytic naevus [Unknown]
  - Urinary tract infection [Unknown]
  - Loss of personal independence in daily activities [Unknown]
  - Osteoarthritis [Unknown]
  - Renal neoplasm [Unknown]
  - Varicose vein [Unknown]
  - Blood glucose increased [Unknown]
  - Cholelithiasis [Unknown]
  - Renal cyst [Unknown]
  - Drug intolerance [Unknown]
  - Postoperative renal failure [Unknown]
  - Cognitive disorder [Unknown]
  - Cardiac failure [Unknown]
  - Joint swelling [Unknown]
  - External ear disorder [Unknown]
  - Hypoaesthesia [Unknown]
  - Rash [Unknown]
  - Tendon rupture [Unknown]
  - Brain oedema [Unknown]
  - Functional gastrointestinal disorder [Unknown]
  - Pustule [Unknown]
  - Dysuria [Unknown]

NARRATIVE: CASE EVENT DATE: 2018
